FAERS Safety Report 8190259-X (Version None)
Quarter: 2012Q1

REPORT INFORMATION
  Report Type: 
  Country: None (occurrence: None)
  Receive Date: 20120307
  Receipt Date: 20120222
  Transmission Date: 20120608
  Serious: Yes (Other)
  Sender: FDA-Public Use
  Company Number: BE-MYLANLABS-2012S1004357

PATIENT
  Age: 7 Year
  Sex: Male

DRUGS (8)
  1. INDOMETHACIN [Concomitant]
     Route: 065
  2. NICARDIPINE HCL [Concomitant]
     Route: 065
  3. CYSTAGON [Suspect]
     Indication: CYSTINOSIS
     Dosage: FREE-BASE 48 MG/KG/DAY (1.3 G/M2/DAY) AT ADR
     Route: 065
  4. SODIUM BICARBONATE [Concomitant]
     Route: 065
  5. LEVOCARNITINE [Concomitant]
     Route: 065
  6. POTASSIUM CHLORIDE [Concomitant]
     Route: 065
  7. ALFACALCIDOL [Concomitant]
     Route: 065
  8. PHOSPHORIC ACID [Concomitant]
     Route: 065

REACTIONS (3)
  - CONTUSION [None]
  - OSTEOPOROSIS [None]
  - BONE PAIN [None]
